FAERS Safety Report 22251815 (Version 2)
Quarter: 2023Q2

REPORT INFORMATION
  Report Type: Spontaneous
  Country: US (occurrence: US)
  Receive Date: 20230425
  Receipt Date: 20230526
  Transmission Date: 20230721
  Serious: No
  Sender: FDA-Public Use
  Company Number: US-PFIZER INC-PV202200116615

PATIENT
  Age: 79 Year
  Sex: Female

DRUGS (1)
  1. NIVESTYM [Suspect]
     Active Substance: FILGRASTIM-AAFI
     Indication: Pancreatic carcinoma
     Dosage: 300 UG

REACTIONS (2)
  - White blood cell count decreased [Unknown]
  - Antinuclear antibody positive [Unknown]
